FAERS Safety Report 24880574 (Version 1)
Quarter: 2025Q1

REPORT INFORMATION
  Report Type: Report from Study
  Country: JP (occurrence: JP)
  Receive Date: 20250123
  Receipt Date: 20250123
  Transmission Date: 20250408
  Serious: Yes (Other)
  Sender: JOHNSON AND JOHNSON
  Company Number: JP-JNJFOC-20250171565

PATIENT

DRUGS (1)
  1. IMBRUVICA [Suspect]
     Active Substance: IBRUTINIB
     Indication: Chronic graft versus host disease
     Route: 048

REACTIONS (25)
  - Anaemia [Unknown]
  - Thrombocytopenia [Unknown]
  - Lymphopenia [Unknown]
  - Pneumonia [Unknown]
  - Platelet count decreased [Unknown]
  - Gamma-glutamyltransferase increased [Unknown]
  - Hypokalaemia [Unknown]
  - Hyperlipidaemia [Unknown]
  - Hypogammaglobulinaemia [Unknown]
  - White blood cell count decreased [Unknown]
  - Hypoalbuminaemia [Unknown]
  - Hypophosphataemia [Unknown]
  - Hypertension [Unknown]
  - Ileus [Unknown]
  - Nasopharyngitis [Unknown]
  - Cystitis viral [Unknown]
  - Diarrhoea [Unknown]
  - Pyrexia [Unknown]
  - Dehydration [Unknown]
  - Headache [Unknown]
  - Epistaxis [Unknown]
  - Acne [Unknown]
  - Non-cardiac chest pain [Unknown]
  - Viral infection [Unknown]
  - Bacterial infection [Unknown]
